FAERS Safety Report 6191380-8 (Version None)
Quarter: 2009Q2

REPORT INFORMATION
  Report Type: 
  Country: None (occurrence: None)
  Receive Date: 20090515
  Receipt Date: 20090513
  Transmission Date: 20091009
  Serious: Yes (Hospitalization)
  Sender: FDA-Public Use
  Company Number: ES-ASTRAZENECA-2009AC01036

PATIENT
  Age: 79 Year
  Sex: Female

DRUGS (2)
  1. TENORETIC 100 [Suspect]
     Indication: HYPERTENSION
     Route: 048
     Dates: end: 20080910
  2. BOI-K [Concomitant]
     Route: 048

REACTIONS (1)
  - ATRIOVENTRICULAR BLOCK COMPLETE [None]
